FAERS Safety Report 16878542 (Version 3)
Quarter: 2020Q4

REPORT INFORMATION
  Report Type: Report from Study
  Country: US (occurrence: US)
  Receive Date: 20191002
  Receipt Date: 20201001
  Transmission Date: 20210113
  Serious: No
  Sender: FDA-Public Use
  Company Number: US-SA-2019SA262151

PATIENT

DRUGS (2)
  1. DUPILUMAB [Suspect]
     Active Substance: DUPILUMAB
     Indication: DERMATITIS ATOPIC
     Dosage: 300 MG, QOW
     Route: 058
     Dates: end: 202003
  2. DUPILUMAB [Suspect]
     Active Substance: DUPILUMAB
     Indication: PSORIASIS
     Dosage: 600 MG, 1X
     Route: 058
     Dates: start: 20190611, end: 20190611

REACTIONS (5)
  - Product use in unapproved indication [Unknown]
  - Dry skin [Not Recovered/Not Resolved]
  - Rash macular [Not Recovered/Not Resolved]
  - Injection site pain [Recovered/Resolved]
  - Pruritus [Not Recovered/Not Resolved]

NARRATIVE: CASE EVENT DATE: 2019
